FAERS Safety Report 4867396-8 (Version None)
Quarter: 2005Q4

REPORT INFORMATION
  Report Type: 
  Country: None (occurrence: None)
  Receive Date: 20051223
  Receipt Date: 20051223
  Transmission Date: 20060501
  Serious: Yes (Other)
  Sender: FDA-Public Use
  Company Number: None

PATIENT
  Age: 11 Year
  Sex: Male
  Weight: 49.8957 kg

DRUGS (4)
  1. STRATTERA [Suspect]
     Indication: ABNORMAL BEHAVIOUR
     Dosage: 40 MG 1X /DAY PO
     Route: 048
     Dates: start: 20031001, end: 20031201
  2. STRATTERA [Suspect]
     Indication: ATTENTION DEFICIT/HYPERACTIVITY DISORDER
     Dosage: 40 MG 1X /DAY PO
     Route: 048
     Dates: start: 20031001, end: 20031201
  3. STRATTERA [Suspect]
     Indication: ABNORMAL BEHAVIOUR
     Dosage: 40 MG 1X /DAY PO
     Route: 048
     Dates: start: 20031226, end: 20040105
  4. STRATTERA [Suspect]
     Indication: ATTENTION DEFICIT/HYPERACTIVITY DISORDER
     Dosage: 40 MG 1X /DAY PO
     Route: 048
     Dates: start: 20031226, end: 20040105

REACTIONS (7)
  - ABNORMAL BEHAVIOUR [None]
  - CONDITION AGGRAVATED [None]
  - DEPRESSION [None]
  - FEELING ABNORMAL [None]
  - NEGATIVE THOUGHTS [None]
  - OBSESSIVE RUMINATION [None]
  - THINKING ABNORMAL [None]
